FAERS Safety Report 7615780-1 (Version None)
Quarter: 2011Q3

REPORT INFORMATION
  Report Type: 
  Country: None (occurrence: None)
  Receive Date: 20110711
  Receipt Date: 20110624
  Transmission Date: 20111222
  Serious: Yes (Other)
  Sender: FDA-Public Use
  Company Number: TPA2011A03455

PATIENT
  Age: 79 Year
  Sex: Female

DRUGS (3)
  1. GLYBURIDE [Concomitant]
  2. ACTOS [Suspect]
     Dosage: 30 MG, 1 IN 1 D, PER ORAL; 15 MG, 1 IN 1 D, PER ORAL
     Route: 048
     Dates: start: 20020101
  3. ACTOS [Suspect]
     Dosage: 30 MG, 1 IN 1 D, PER ORAL; 15 MG, 1 IN 1 D, PER ORAL
     Route: 048
     Dates: start: 20010101, end: 20020101

REACTIONS (1)
  - BLADDER CANCER [None]
